FAERS Safety Report 6663502-3 (Version None)
Quarter: 2010Q2

REPORT INFORMATION
  Report Type: 
  Country: None (occurrence: None)
  Receive Date: 20100401
  Receipt Date: 20100324
  Transmission Date: 20101027
  Serious: Yes (Other)
  Sender: FDA-Public Use
  Company Number: US-PFIZER INC-2010025560

PATIENT
  Sex: Male

DRUGS (1)
  1. AROMASIN [Suspect]
     Indication: SARCOMA
     Dosage: UNK

REACTIONS (2)
  - DEVICE RELATED INFECTION [None]
  - PROSTHESIS IMPLANTATION [None]
